FAERS Safety Report 8371671-2 (Version None)
Quarter: 2012Q2

REPORT INFORMATION
  Report Type: 
  Country: None (occurrence: None)
  Receive Date: 20120518
  Receipt Date: 20120516
  Transmission Date: 20120825
  Serious: Yes (Hospitalization, Other)
  Sender: FDA-Public Use
  Company Number: US-PFIZER INC-2012068974

PATIENT
  Sex: Male
  Weight: 86.168 kg

DRUGS (7)
  1. LIPITOR [Suspect]
     Indication: ARTERIAL OCCLUSIVE DISEASE
     Dosage: 10 MG, DAILY
  2. ASPIRIN [Concomitant]
     Dosage: 2 - 81 MG TABLETS, DAILY
     Route: 048
  3. COUMADIN [Concomitant]
     Dosage: 15 MG, 2X/DAY
  4. LIPITOR [Suspect]
     Indication: BLOOD CHOLESTEROL INCREASED
     Dosage: 20 MG, DAILY
     Route: 048
     Dates: start: 19990101
  5. LASIX [Concomitant]
     Indication: DIURETIC THERAPY
     Dosage: 2- 20 MG TABLETS DAILY
     Route: 048
  6. METOPROLOL [Concomitant]
     Indication: HYPERTENSION
     Dosage: UNK, 2X/DAY
  7. LISINOPRIL [Concomitant]
     Dosage: 5 MG, DAILY

REACTIONS (9)
  - RESPIRATORY DISORDER [None]
  - BLOOD CREATININE INCREASED [None]
  - MALAISE [None]
  - PERIPHERAL ARTERIAL OCCLUSIVE DISEASE [None]
  - CARDIAC DISORDER [None]
  - RED BLOOD CELL COUNT DECREASED [None]
  - CARDIAC FAILURE CONGESTIVE [None]
  - ANGIOPLASTY [None]
  - CORONARY ARTERY OCCLUSION [None]
